FAERS Safety Report 14835482 (Version 1)
Quarter: 2018Q2

REPORT INFORMATION
  Report Type: Other
  Country: US (occurrence: US)
  Receive Date: 20180502
  Receipt Date: 20180502
  Transmission Date: 20180711
  Serious: Yes (Death, Life-Threatening, Other)
  Sender: FDA-Public Use
  Company Number: US-DENTSPLY-2018SCDP000067

PATIENT
  Age: 33 Year
  Sex: Male

DRUGS (1)
  1. LIDOCAINE HCL [Suspect]
     Active Substance: LIDOCAINE HYDROCHLORIDE
     Indication: GASTROOESOPHAGEAL REFLUX DISEASE
     Dosage: UNK

REACTIONS (6)
  - Brain herniation [Fatal]
  - Drug abuse [Fatal]
  - Toxicity to various agents [Fatal]
  - Cardiotoxicity [Fatal]
  - Cardiac arrest [Fatal]
  - Brain injury [Fatal]
